FAERS Safety Report 11785780 (Version 2)
Quarter: 2015Q4

REPORT INFORMATION
  Report Type: Spontaneous
  Country: JP (occurrence: JP)
  Receive Date: 20151130
  Receipt Date: 20151210
  Transmission Date: 20160305
  Serious: Yes (Life-Threatening, Other)
  Sender: FDA-Public Use
  Company Number: JP-GLAXOSMITHKLINE-JP2015GSK168272

PATIENT
  Age: 80 Year
  Sex: Female

DRUGS (5)
  1. EDIROL [Concomitant]
     Active Substance: ELDECALCITOL
  2. OMEGA-3-ACID ETHYL ESTERS. [Suspect]
     Active Substance: OMEGA-3-ACID ETHYL ESTERS
     Indication: THROMBOSIS PROPHYLAXIS
     Dosage: 2 G, UNK
     Route: 048
     Dates: start: 20150929, end: 20151004
  3. TAKEPRON [Concomitant]
     Active Substance: LANSOPRAZOLE
  4. OMEGA-3-ACID ETHYL ESTERS. [Suspect]
     Active Substance: OMEGA-3-ACID ETHYL ESTERS
     Dosage: 2 G, UNK
     Route: 048
     Dates: start: 20151106, end: 20151107
  5. FORTEO [Concomitant]
     Active Substance: TERIPARATIDE

REACTIONS (1)
  - Cholecystitis acute [Recovering/Resolving]

NARRATIVE: CASE EVENT DATE: 20151004
